FAERS Safety Report 5448729-0 (Version None)
Quarter: 2007Q3

REPORT INFORMATION
  Report Type: 
  Country: None (occurrence: None)
  Receive Date: 20070911
  Receipt Date: 20070905
  Transmission Date: 20080115
  Serious: Yes (Other)
  Sender: FDA-Public Use
  Company Number: A0680302A

PATIENT

DRUGS (1)
  1. VALTREX [Suspect]
     Indication: HERPES ZOSTER
     Route: 065

REACTIONS (3)
  - MEDICATION ERROR [None]
  - NEPHROLITHIASIS [None]
  - RENAL DISORDER [None]
